FAERS Safety Report 9767416 (Version 1)
Quarter: 2013Q4

REPORT INFORMATION
  Report Type: Spontaneous
  Country: US (occurrence: None)
  Receive Date: 20131213
  Receipt Date: 20131213
  Transmission Date: 20140711
  Serious: Yes (Death)
  Sender: FDA-Public Use
  Company Number: 2013P1021554

PATIENT
  Age: 76 Year
  Sex: Female
  Weight: 69.85 kg

DRUGS (11)
  1. MORPHINE SULFATE [Suspect]
     Indication: BACK PAIN
     Route: 042
     Dates: start: 20131116, end: 20131116
  2. ONDANSETRON [Suspect]
     Indication: BACK PAIN
     Route: 042
     Dates: start: 20131116, end: 20131116
  3. HUMULIN N [Concomitant]
  4. JANUVIA [Concomitant]
  5. LEVOXYL [Concomitant]
  6. VICODIN [Concomitant]
  7. VIT D2 [Concomitant]
  8. ASA [Concomitant]
  9. COREG CR [Concomitant]
  10. DIOVAN [Concomitant]
  11. GLIPIZIDE [Concomitant]

REACTIONS (3)
  - Myocardial infarction [None]
  - Hypotension [None]
  - Cardiac arrest [None]
